FAERS Safety Report 12354489 (Version 1)
Quarter: 2016Q2

REPORT INFORMATION
  Report Type: Spontaneous
  Country: FR (occurrence: FR)
  Receive Date: 20160511
  Receipt Date: 20160511
  Transmission Date: 20160815
  Serious: Yes (Hospitalization, Other)
  Sender: FDA-Public Use
  Company Number: FR-009507513-1605FRA003001

PATIENT
  Age: 86 Year
  Sex: Female

DRUGS (11)
  1. AMLOR [Concomitant]
     Active Substance: AMLODIPINE BESYLATE
  2. CRESTOR [Concomitant]
     Active Substance: ROSUVASTATIN CALCIUM
  3. DIFFU-K [Concomitant]
     Active Substance: POTASSIUM CHLORIDE
  4. NORSET [Suspect]
     Active Substance: MIRTAZAPINE
     Indication: ANXIETY
     Dosage: UNK
     Route: 048
     Dates: start: 20160321, end: 20160331
  5. EUPANTOL [Concomitant]
     Active Substance: PANTOPRAZOLE SODIUM
  6. VENTOLIN [Concomitant]
     Active Substance: ALBUTEROL SULFATE
     Dosage: UNK
     Route: 002
     Dates: start: 20160322
  7. INNOHEP [Suspect]
     Active Substance: TINZAPARIN SODIUM
     Dosage: STRENGHT: 14000 IU ANTI-XA/0.7ML DOSE: 1 DF, QD
     Route: 058
     Dates: start: 20160326
  8. KARDEGIC [Concomitant]
     Active Substance: ASPIRIN LYSINE
  9. PLAVIX [Concomitant]
     Active Substance: CLOPIDOGREL BISULFATE
  10. LASILIX [Concomitant]
     Active Substance: FUROSEMIDE
  11. XANAX [Concomitant]
     Active Substance: ALPRAZOLAM
     Dosage: UNK
     Route: 048
     Dates: start: 20160331

REACTIONS (5)
  - Stereotypy [Recovered/Resolved]
  - Quadriplegia [Recovered/Resolved]
  - Hemiparesis [Recovered/Resolved]
  - Chest pain [Recovered/Resolved]
  - Facial paralysis [Recovered/Resolved]

NARRATIVE: CASE EVENT DATE: 20160401
